FAERS Safety Report 13230711 (Version 2)
Quarter: 2017Q1

REPORT INFORMATION
  Report Type: Spontaneous
  Country: KR (occurrence: KR)
  Receive Date: 20170214
  Receipt Date: 20170301
  Transmission Date: 20170428
  Serious: Yes (Life-Threatening, Hospitalization, Other)
  Sender: FDA-Public Use
  Company Number: KR-UCBSA-2017005733

PATIENT
  Age: 48 Year
  Sex: Male

DRUGS (2)
  1. XYZAL [Suspect]
     Active Substance: LEVOCETIRIZINE DIHYDROCHLORIDE
     Indication: NEURODERMATITIS
     Dosage: 5 MG DAILY DOSE
  2. BEPOTASTINE BESILATE [Concomitant]
     Active Substance: BEPOTASTINE BESILATE
     Indication: NEURODERMATITIS
     Dosage: 10 MG, UNK

REACTIONS (1)
  - Drug-induced liver injury [Recovered/Resolved]
